FAERS Safety Report 23660266 (Version 1)
Quarter: 2024Q1

REPORT INFORMATION
  Report Type: Spontaneous
  Country: JP (occurrence: JP)
  Receive Date: 20240321
  Receipt Date: 20240321
  Transmission Date: 20240410
  Serious: Yes (Death)
  Sender: FDA-Public Use
  Company Number: JP-STRIDES ARCOLAB LIMITED-2024SP003299

PATIENT
  Age: 16 Year
  Sex: Male

DRUGS (16)
  1. PREDNISOLONE [Suspect]
     Active Substance: PREDNISOLONE
     Indication: High-grade B-cell lymphoma
     Dosage: 30 MILLIGRAM/SQ. METER PER DAY, 1 CYCLICAL, RECEIVED DAILY ON DAYS 1-3 OF THE CYCLE, UNDER INDUCTION
     Route: 065
  2. PREDNISOLONE [Suspect]
     Active Substance: PREDNISOLONE
     Indication: Acute graft versus host disease
     Dosage: 60 MILLIGRAM/SQ. METER/ DAY, 1 CYCLICAL, RECEIVED DAILY ON DAYS 4-7 OF THE CYCLE, UNDER INDUCTION PH
     Route: 065
  3. PREDNISOLONE [Suspect]
     Active Substance: PREDNISOLONE
     Dosage: DOSE UNKNOWN, 1 CYCLICAL
     Route: 065
  4. PREDNISOLONE [Suspect]
     Active Substance: PREDNISOLONE
     Dosage: UNK
     Route: 065
  5. CYCLOPHOSPHAMIDE [Suspect]
     Active Substance: CYCLOPHOSPHAMIDE
     Indication: High-grade B-cell lymphoma
     Dosage: 50 MILLIGRAM/SQ. METER/ DAY, 1 CYCLICA, STARTED RECEIVING ON DAY4-6 OF THE CYCLE, UNDER INDUCTION PH
     Route: 065
  6. CYCLOPHOSPHAMIDE [Suspect]
     Active Substance: CYCLOPHOSPHAMIDE
     Dosage: DOSE UNKNOWN, 1 CYCLICAL
     Route: 065
  7. VINCRISTINE [Suspect]
     Active Substance: VINCRISTINE
     Indication: High-grade B-cell lymphoma
     Dosage: 1 MILLIGRAM/SQ. METER/ DAY, 1 CYCLICAL, STARTED RECEIVING ON DAY 3 OF THE CYCLE, UNDER INDUCTION PHA
     Route: 065
  8. VINCRISTINE [Suspect]
     Active Substance: VINCRISTINE
     Dosage: DOSE UNKNOWN, 1 CYCLICAL
     Route: 065
  9. POLATUZUMAB VEDOTIN [Suspect]
     Active Substance: POLATUZUMAB VEDOTIN
     Indication: High-grade B-cell lymphoma
     Dosage: 1.8 MILLIGRAM/KILOGRAM/ DAY, 1 CYCLICAL, STARTED RECEIVING PER DAY ON DAY 2, UNDER?POLA-BR THERAPY
     Route: 065
  10. BENDAMUSTINE [Suspect]
     Active Substance: BENDAMUSTINE
     Indication: High-grade B-cell lymphoma
     Dosage: 90 MILLIGRAM/SQ. METER/ DAY, 1 CYCLICAL, STARTED RECEIVING ON DAYS 2-3 OF THE CYCLE, UNDER?POLA-BR T
     Route: 065
  11. RITUXIMAB [Suspect]
     Active Substance: RITUXIMAB
     Indication: High-grade B-cell lymphoma
     Dosage: 375 MILLIGRAM/SQ. METER/ DAY, 1 CYCLICAL, STARTED RECEIVING UNDER INDUCTION PHASE
     Route: 065
  12. RITUXIMAB [Suspect]
     Active Substance: RITUXIMAB
     Dosage: 375 MILLIGRAM/SQ. METER, 1 CYCLICAL, STARTED RECEIVING ON DAY 1 OF THE CYCLE, UNDER POLA-BR THERAPY
     Route: 065
  13. FLUDARABINE [Concomitant]
     Active Substance: FLUDARABINE PHOSPHATE
     Indication: Bone marrow conditioning regimen
     Dosage: UNK
     Route: 065
  14. CYTARABINE [Concomitant]
     Active Substance: CYTARABINE
     Indication: Bone marrow conditioning regimen
     Dosage: UNK
     Route: 065
  15. MELPHALAN [Concomitant]
     Active Substance: MELPHALAN
     Indication: Bone marrow conditioning regimen
     Dosage: UNK
     Route: 065
  16. RUXOLITINIB [Concomitant]
     Active Substance: RUXOLITINIB
     Indication: Acute graft versus host disease
     Dosage: UNK
     Route: 065

REACTIONS (1)
  - Drug ineffective [Fatal]
